FAERS Safety Report 5102984-5 (Version None)
Quarter: 2006Q3

REPORT INFORMATION
  Report Type: 
  Country: None (occurrence: None)
  Receive Date: 20060908
  Receipt Date: 20060907
  Transmission Date: 20061208
  Serious: Yes (Hospitalization, Other)
  Sender: FDA-Public Use
  Company Number: 2006AL002530

PATIENT
  Age: 84 Year
  Sex: Female

DRUGS (6)
  1. SULFATRIM PEDIATRIC [Suspect]
     Indication: STAPHYLOCOCCAL INFECTION
     Dosage: 400 MG; QD; PO
     Route: 048
     Dates: start: 20060612, end: 20060622
  2. DOXYCYCLINE [Concomitant]
  3. GLIPIZIDE [Concomitant]
  4. MIRTAZAPINE [Concomitant]
  5. OMEPRAZOLE [Concomitant]
  6. SPIRONOLACTONE [Concomitant]

REACTIONS (2)
  - BLOOD CREATININE DECREASED [None]
  - RENAL IMPAIRMENT [None]
